FAERS Safety Report 6886395-8 (Version None)
Quarter: 2010Q3

REPORT INFORMATION
  Report Type: 
  Country: None (occurrence: None)
  Receive Date: 20100729
  Receipt Date: 20090519
  Transmission Date: 20110219
  Serious: No
  Sender: FDA-Public Use
  Company Number: US-PFIZER INC-2009215208

PATIENT
  Sex: Male
  Weight: 127 kg

DRUGS (3)
  1. CELEBREX [Suspect]
     Dosage: UNK
     Dates: start: 20090301
  2. ADVICOR [Suspect]
     Dosage: 500 MG, 1X/DAY
     Dates: start: 20080701, end: 20081101
  3. ADVICOR [Suspect]
     Dosage: UNK
     Dates: start: 20081101

REACTIONS (3)
  - ABDOMINAL PAIN UPPER [None]
  - DIARRHOEA [None]
  - HOT FLUSH [None]
